FAERS Safety Report 6651158-5 (Version None)
Quarter: 2010Q1

REPORT INFORMATION
  Report Type: 
  Country: None (occurrence: None)
  Receive Date: 20100325
  Receipt Date: 20100310
  Transmission Date: 20100710
  Serious: No
  Sender: FDA-Public Use
  Company Number: US-B.I. PHARMACEUTICALS,INC./RIDGEFIELD-2010-BP-03126BP

PATIENT
  Age: 53 Year
  Sex: Male

DRUGS (2)
  1. VIRAMUNE [Suspect]
     Indication: ACQUIRED IMMUNODEFICIENCY SYNDROME
     Dates: start: 20050101
  2. TRUVADA [Suspect]
     Dates: start: 20050101

REACTIONS (1)
  - VIRAL LOAD [None]
